FAERS Safety Report 5352712-3 (Version None)
Quarter: 2007Q2

REPORT INFORMATION
  Report Type: 
  Country: None (occurrence: None)
  Receive Date: 20070611
  Receipt Date: 20070531
  Transmission Date: 20071010
  Serious: Yes (Hospitalization)
  Sender: FDA-Public Use
  Company Number: JP-ELI_LILLY_AND_COMPANY-JP200704004379

PATIENT
  Age: 53 Year
  Sex: Male
  Weight: 61.5 kg

DRUGS (9)
  1. NOVOLIN R [Concomitant]
     Indication: DIABETES MELLITUS NON-INSULIN-DEPENDENT
     Dosage: 12 IU, DAILY (1/D)
     Route: 065
     Dates: start: 20060411, end: 20061023
  2. NOVOLIN R [Concomitant]
     Dosage: 8 IU, DAILY (1/D)
     Route: 065
     Dates: start: 20061024
  3. NOVORAPID [Concomitant]
     Indication: DIABETES MELLITUS NON-INSULIN-DEPENDENT
     Dosage: 12 IU, DAILY (1/D)
     Route: 065
     Dates: start: 20060701, end: 20061023
  4. NOVORAPID [Concomitant]
     Dosage: 8 IU, DAILY (1/D)
     Route: 065
     Dates: start: 20061024, end: 20070213
  5. NOVORAPID [Concomitant]
     Dosage: 16 IU, DAILY (1/D)
     Route: 065
     Dates: start: 20060214
  6. CYANOCOBALAMIN [Concomitant]
     Indication: HYPERTENSION
     Dosage: 1500 UG, DAILY (1/D)
     Route: 048
     Dates: start: 20060210
  7. DULOXETINE HYDROCHLORIDE [Suspect]
     Indication: DIABETIC NEUROPATHY
     Dosage: 20 MG, DAILY (1/D)
     Route: 048
     Dates: start: 20060927, end: 20061003
  8. DULOXETINE HYDROCHLORIDE [Suspect]
     Dosage: 40 MG, DAILY (1/D)
     Route: 048
     Dates: start: 20061004, end: 20061010
  9. DULOXETINE HYDROCHLORIDE [Suspect]
     Dosage: 60 MG, DAILY (1/D)
     Route: 048
     Dates: start: 20061011

REACTIONS (1)
  - ABSCESS NECK [None]
